FAERS Safety Report 8425396-5 (Version None)
Quarter: 2012Q2

REPORT INFORMATION
  Report Type: 
  Country: None (occurrence: None)
  Receive Date: 20120611
  Receipt Date: 20120603
  Transmission Date: 20120825
  Serious: No
  Sender: FDA-Public Use
  Company Number: US-BAYER-2012-056857

PATIENT

DRUGS (4)
  1. ANALGESICS [Concomitant]
     Indication: MIGRAINE
     Dosage: 5 DF, UNK
  2. ACETAMINOPHEN [Concomitant]
     Indication: MIGRAINE
     Dosage: 10 DF, UNK
  3. IBUPROFEN (ADVIL) [Concomitant]
     Indication: MIGRAINE
  4. ALEVE (CAPLET) [Suspect]
     Indication: MIGRAINE
     Dosage: UNK
     Dates: start: 20120603

REACTIONS (1)
  - NO ADVERSE EVENT [None]
